FAERS Safety Report 4994208-4 (Version None)
Quarter: 2006Q1

REPORT INFORMATION
  Report Type: 
  Country: None (occurrence: None)
  Receive Date: 20060313
  Receipt Date: 20050915
  Transmission Date: 20060701
  Serious: Yes (Hospitalization)
  Sender: FDA-Public Use
  Company Number: PHEH2005US10263

PATIENT
  Age: 64 Year
  Sex: Male

DRUGS (2)
  1. TRILEPTAL [Suspect]
     Indication: CONVULSION
     Dosage: 150 MG,QHS,ORAL
     Route: 048
     Dates: start: 20050628, end: 20050702
  2. DILANTIN /AUS/ (PHENYTOIN SODIUM) [Concomitant]

REACTIONS (5)
  - ANGIONEUROTIC OEDEMA [None]
  - DYSPNOEA [None]
  - LIFE SUPPORT [None]
  - RASH PRURITIC [None]
  - SWELLING FACE [None]
